FAERS Safety Report 17584568 (Version 1)
Quarter: 2020Q1

REPORT INFORMATION
  Report Type: Spontaneous
  Country: US (occurrence: US)
  Receive Date: 20200323
  Receipt Date: 20200323
  Transmission Date: 20200409
  Serious: No
  Sender: FDA-Public Use
  Company Number: None

PATIENT
  Age: 51 Year
  Sex: Female
  Weight: 80.74 kg

DRUGS (2)
  1. VENLAFAXAINE 112.5MG [Suspect]
     Active Substance: VENLAFAXINE HYDROCHLORIDE
     Indication: GENERALISED ANXIETY DISORDER
     Dosage: ?          OTHER FREQUENCY:3;?
     Route: 048
  2. VENLAFAXAINE 112.5MG [Suspect]
     Active Substance: VENLAFAXINE HYDROCHLORIDE
     Indication: PANIC DISORDER
     Dosage: ?          OTHER FREQUENCY:3;?
     Route: 048

REACTIONS (9)
  - Irritability [None]
  - Headache [None]
  - Drug withdrawal syndrome [None]
  - Panic attack [None]
  - Dizziness [None]
  - Bruxism [None]
  - Nausea [None]
  - Paraesthesia [None]
  - Muscle tightness [None]
